FAERS Safety Report 17445906 (Version 1)
Quarter: 2020Q1

REPORT INFORMATION
  Report Type: Spontaneous
  Country: GB (occurrence: GB)
  Receive Date: 20200221
  Receipt Date: 20200221
  Transmission Date: 20200409
  Serious: Yes (Other)
  Sender: FDA-Public Use
  Company Number: GB-MYLANLABS-2020M1018648

PATIENT
  Age: 71 Year
  Sex: Female
  Weight: 56 kg

DRUGS (6)
  1. FELODIPINE. [Concomitant]
     Active Substance: FELODIPINE
     Dosage: 1 DOSAGE FORM, QD
     Dates: start: 20181024
  2. MOMETASONE [Concomitant]
     Active Substance: MOMETASONE
     Dosage: 4 DOSAGE FORM, QD (SPRAYS)
     Dates: start: 20180314
  3. EZETIMIBE. [Suspect]
     Active Substance: EZETIMIBE
     Indication: PRODUCT USED FOR UNKNOWN INDICATION
     Route: 048
     Dates: start: 20191203, end: 20191212
  4. SUMATRIPTAN. [Concomitant]
     Active Substance: SUMATRIPTAN
     Dosage: UNK UNK, PRN
     Dates: start: 20160902
  5. CLENIL MODULITE [Concomitant]
     Active Substance: BECLOMETHASONE DIPROPIONATE
     Dosage: 4 DOSAGE FORM, QD (PUFFS)
     Dates: start: 20180903
  6. LOSARTAN. [Concomitant]
     Active Substance: LOSARTAN
     Indication: BLOOD PRESSURE MEASUREMENT
     Dosage: 1 DOSAGE FORM, QD
     Dates: start: 20181024

REACTIONS (4)
  - Migraine [Recovered/Resolved]
  - Anxiety [Recovered/Resolved]
  - Myalgia [Recovered/Resolved]
  - Nausea [Recovered/Resolved]

NARRATIVE: CASE EVENT DATE: 20191201
